FAERS Safety Report 6436759-1 (Version None)
Quarter: 2009Q4

REPORT INFORMATION
  Report Type: 
  Country: None (occurrence: None)
  Receive Date: 20091111
  Receipt Date: 20090202
  Transmission Date: 20100525
  Serious: No
  Sender: FDA-Public Use
  Company Number: US-BAUSCH-2009BL000503

PATIENT
  Age: 77 Year
  Sex: Male
  Weight: 68 kg

DRUGS (4)
  1. NEOMYCIN + POLYMYXIN B SULFATES + BACITRACIN ZINC + HYDROCORTISONE [Suspect]
     Indication: EYE INFECTION
     Route: 047
     Dates: start: 20081216, end: 20081201
  2. NEOMYCIN + POLYMYXIN B SULFATES + BACITRACIN ZINC + HYDROCORTISONE [Suspect]
     Route: 047
     Dates: start: 20081201, end: 20081224
  3. PRAVACHOL [Concomitant]
     Indication: BLOOD CHOLESTEROL INCREASED
  4. CENTRUM SILVER [Concomitant]
     Indication: VITAMIN SUPPLEMENTATION

REACTIONS (1)
  - DRUG INEFFECTIVE [None]
